FAERS Safety Report 7220095-X (Version None)
Quarter: 2011Q1

REPORT INFORMATION
  Report Type: 
  Country: None (occurrence: None)
  Receive Date: 20110111
  Receipt Date: 20101231
  Transmission Date: 20110831
  Serious: Yes (Disabling)
  Sender: FDA-Public Use
  Company Number: B0677326A

PATIENT
  Age: 65 Year
  Sex: Female
  Weight: 103 kg

DRUGS (4)
  1. GLUCOPHAGE [Concomitant]
     Route: 048
     Dates: start: 20061201
  2. COZAAR [Concomitant]
     Dates: start: 20000101
  3. AVANDAMET [Suspect]
     Route: 048
     Dates: start: 20061201
  4. AMAREL [Concomitant]
     Dates: start: 20061201

REACTIONS (3)
  - WEIGHT INCREASED [None]
  - OEDEMA PERIPHERAL [None]
  - DYSPNOEA EXERTIONAL [None]
